FAERS Safety Report 12301803 (Version 1)
Quarter: 2016Q2

REPORT INFORMATION
  Report Type: Spontaneous
  Country: US (occurrence: US)
  Receive Date: 20160425
  Receipt Date: 20160425
  Transmission Date: 20160815
  Serious: No
  Sender: FDA-Public Use
  Company Number: US-GLAXOSMITHKLINE-US2016047591

PATIENT
  Age: 65 Year
  Sex: Female

DRUGS (9)
  1. LORAZEPAM. [Concomitant]
     Active Substance: LORAZEPAM
  2. VENTOLIN [Concomitant]
     Active Substance: ALBUTEROL SULFATE
  3. THEOPHYLLINE [Concomitant]
     Active Substance: THEOPHYLLINE ANHYDROUS
  4. METOPROLOL. [Concomitant]
     Active Substance: METOPROLOL
  5. ANORO ELLIPTA [Suspect]
     Active Substance: UMECLIDINIUM BROMIDE\VILANTEROL TRIFENATATE
     Indication: CHRONIC OBSTRUCTIVE PULMONARY DISEASE
     Dosage: 1 PUFF(S), QD
     Route: 055
     Dates: start: 20160304
  6. ANORO ELLIPTA [Suspect]
     Active Substance: UMECLIDINIUM BROMIDE\VILANTEROL TRIFENATATE
     Indication: PULMONARY HYPERTENSION
     Dosage: 1 PUFF(S), WE
     Route: 055
     Dates: start: 201603
  7. PROVENTIL [Concomitant]
     Active Substance: ALBUTEROL
  8. DULERA [Concomitant]
     Active Substance: FORMOTEROL FUMARATE DIHYDRATE\MOMETASONE FUROATE
  9. OPSUMIT [Suspect]
     Active Substance: MACITENTAN
     Indication: PRODUCT USED FOR UNKNOWN INDICATION

REACTIONS (8)
  - Malaise [Unknown]
  - Peripheral swelling [Unknown]
  - Off label use [Unknown]
  - Product use issue [Unknown]
  - Dizziness [Unknown]
  - Dyspnoea [Unknown]
  - Muscle spasms [Unknown]
  - Faeces discoloured [Unknown]

NARRATIVE: CASE EVENT DATE: 201603
